FAERS Safety Report 8983654 (Version 2)
Quarter: 2013Q1

REPORT INFORMATION
  Report Type: Spontaneous
  Country: US (occurrence: US)
  Receive Date: 20121224
  Receipt Date: 20130123
  Transmission Date: 20140127
  Serious: No
  Sender: FDA-Public Use
  Company Number: US-BIOGENIDEC-2012BI062836

PATIENT
  Age: 42 None
  Sex: Male

DRUGS (1)
  1. TYSABRI [Suspect]
     Indication: MULTIPLE SCLEROSIS
     Route: 042
     Dates: start: 20121001, end: 20121126

REACTIONS (8)
  - Hypoaesthesia [Unknown]
  - Gait disturbance [Unknown]
  - Paraesthesia [Unknown]
  - Dysphonia [Recovered/Resolved]
  - Balance disorder [Unknown]
  - Coordination abnormal [Unknown]
  - Muscular weakness [Unknown]
  - Arthralgia [Recovered/Resolved]
